FAERS Safety Report 13184648 (Version 1)
Quarter: 2017Q1

REPORT INFORMATION
  Report Type: Spontaneous
  Country: CH (occurrence: GB)
  Receive Date: 20170203
  Receipt Date: 20170203
  Transmission Date: 20170428
  Serious: Yes (Other)
  Sender: FDA-Public Use
  Company Number: CH-LPDUSPRD-20170104

PATIENT

DRUGS (1)
  1. VENOFER [Suspect]
     Active Substance: IRON SUCROSE
     Dosage: DOSE UNKNOWN
     Route: 065

REACTIONS (3)
  - Blood pressure decreased [Unknown]
  - Dyspnoea [Unknown]
  - Swelling face [Unknown]
